FAERS Safety Report 9238161 (Version 2)
Quarter: 2013Q3

REPORT INFORMATION
  Report Type: Report from Study
  Country: NL (occurrence: NL)
  Receive Date: 20130418
  Receipt Date: 20130723
  Transmission Date: 20140515
  Serious: Yes (Hospitalization)
  Sender: FDA-Public Use
  Company Number: PHHY2013NL035991

PATIENT
  Sex: Male

DRUGS (4)
  1. ZOMETA [Suspect]
     Indication: METASTASES TO BONE
     Dosage: 4 MG/100 ML, ONCE PER 56 DAYS
     Route: 042
     Dates: start: 201110
  2. ZOMETA [Suspect]
     Dosage: 4 MG/100 ML, ONCE PER 56 DAYS
     Route: 042
     Dates: start: 20121026
  3. ZOMETA [Suspect]
     Dosage: 4 MG/100 ML, ONCE PER 56 DAYS
     Route: 042
     Dates: start: 20130216
  4. ZOMETA [Suspect]
     Dosage: 4 MG/100 ML, ONCE PER 56 DAYS
     Route: 042
     Dates: start: 20130412

REACTIONS (2)
  - Urinary retention [Recovered/Resolved]
  - Blood urine present [Recovered/Resolved]
